FAERS Safety Report 4657071-7 (Version None)
Quarter: 2005Q2

REPORT INFORMATION
  Report Type: 
  Country: None (occurrence: None)
  Receive Date: 20050506
  Receipt Date: 20050422
  Transmission Date: 20051028
  Serious: Yes (Hospitalization, Other)
  Sender: FDA-Public Use
  Company Number: 166524

PATIENT
  Sex: Female

DRUGS (2)
  1. AVONEX [Suspect]
     Indication: MULTIPLE SCLEROSIS
     Dosage: IM
     Route: 030
     Dates: start: 20020731
  2. DILANTIN [Concomitant]

REACTIONS (9)
  - CONVULSION [None]
  - DIALYSIS [None]
  - DRUG LEVEL INCREASED [None]
  - DRUG TOXICITY [None]
  - HEPATIC FAILURE [None]
  - ISCHAEMIC HEPATITIS [None]
  - KNEE ARTHROPLASTY [None]
  - LOSS OF CONSCIOUSNESS [None]
  - RENAL FAILURE [None]
